FAERS Safety Report 8487358-1 (Version None)
Quarter: 2012Q2

REPORT INFORMATION
  Report Type: 
  Country: None (occurrence: None)
  Receive Date: 20120628
  Receipt Date: 20120628
  Transmission Date: 20120825
  Serious: Yes (Life-Threatening, Hospitalization, Other)
  Sender: FDA-Public Use
  Company Number: None

PATIENT
  Sex: Female
  Weight: 63.5036 kg

DRUGS (2)
  1. ALENDRONATE SODIUM [Suspect]
     Indication: OSTEOPOROSIS
     Dosage: 70 MG 1X/WK PO
     Route: 048
     Dates: start: 20120317, end: 20120616
  2. OSMOPREP [Suspect]
     Indication: COLONOSCOPY
     Dosage: 24 TABLETS ONE DAY PO
     Route: 048
     Dates: start: 20120322, end: 20120323

REACTIONS (23)
  - HYPOAESTHESIA [None]
  - ELECTROLYTE IMBALANCE [None]
  - PYREXIA [None]
  - MUSCLE TWITCHING [None]
  - HYPERTENSION [None]
  - CHEST PAIN [None]
  - PALPITATIONS [None]
  - DYSGEUSIA [None]
  - ARTHRALGIA [None]
  - ASTHMA [None]
  - HEADACHE [None]
  - DEPRESSION [None]
  - DIARRHOEA [None]
  - MYALGIA [None]
  - MEMORY IMPAIRMENT [None]
  - INFLUENZA LIKE ILLNESS [None]
  - ANXIETY [None]
  - FATIGUE [None]
  - DRUG INTERACTION [None]
  - PARAESTHESIA [None]
  - MOBILITY DECREASED [None]
  - TEETHING [None]
  - DYSPNOEA [None]
